FAERS Safety Report 17020183 (Version 1)
Quarter: 2019Q4

REPORT INFORMATION
  Report Type: Spontaneous
  Country: FR (occurrence: FR)
  Receive Date: 20191112
  Receipt Date: 20191112
  Transmission Date: 20200122
  Serious: Yes (Other)
  Sender: FDA-Public Use
  Company Number: FR-SHILPA MEDICARE LIMITED-SML-FR-2019-00234

PATIENT
  Age: 77 Year
  Sex: Male

DRUGS (2)
  1. IMATINIB, UNKNOWN [Suspect]
     Active Substance: IMATINIB
     Indication: GASTROINTESTINAL STROMAL TUMOUR
     Dosage: UNK
     Route: 065
     Dates: start: 2005
  2. IMATINIB, UNKNOWN [Suspect]
     Active Substance: IMATINIB
     Indication: GASTROINTESTINAL STROMAL TUMOUR
     Dosage: UNK
     Route: 065
     Dates: start: 2005

REACTIONS (3)
  - Muscular weakness [Unknown]
  - Axonal neuropathy [Unknown]
  - Diaphragmatic disorder [Unknown]
